FAERS Safety Report 6068914-7 (Version None)
Quarter: 2009Q1

REPORT INFORMATION
  Report Type: 
  Country: None (occurrence: None)
  Receive Date: 20090206
  Receipt Date: 20090119
  Transmission Date: 20090719
  Serious: Yes (Other)
  Sender: FDA-Public Use
  Company Number: JP-ASTRAZENECA-2009SE00606

PATIENT
  Sex: Male

DRUGS (4)
  1. AMIAS [Suspect]
     Indication: HYPERTENSION
     Route: 048
  2. BENDROFLUAZIDE [Concomitant]
     Indication: BLOOD PRESSURE
     Route: 048
  3. AMLODIPINE [Concomitant]
     Indication: BLOOD PRESSURE
     Route: 048
  4. RAMIPRIL [Concomitant]
     Indication: BLOOD PRESSURE
     Route: 048

REACTIONS (2)
  - ARTHRALGIA [None]
  - CONSTIPATION [None]
